FAERS Safety Report 15460514 (Version 1)
Quarter: 2018Q4

REPORT INFORMATION
  Report Type: Spontaneous
  Country: NL (occurrence: NL)
  Receive Date: 20181003
  Receipt Date: 20181003
  Transmission Date: 20190204
  Serious: Yes (Death)
  Sender: FDA-Public Use
  Company Number: NL-MYLANLABS-2018M1071520

PATIENT
  Age: 5 Year
  Sex: Female

DRUGS (5)
  1. CARBOPLATIN. [Suspect]
     Active Substance: CARBOPLATIN
     Indication: NEPHROBLASTOMA
     Dosage: UNK
     Route: 065
  2. ETOPOSIDE. [Suspect]
     Active Substance: ETOPOSIDE
     Indication: NEPHROBLASTOMA
     Dosage: UNK
     Route: 065
  3. CYCLOPHOSPHAMIDE. [Suspect]
     Active Substance: CYCLOPHOSPHAMIDE
     Indication: NEPHROBLASTOMA
     Dosage: UNK
     Route: 065
  4. IRINOTECAN [Suspect]
     Active Substance: IRINOTECAN
     Indication: NEPHROBLASTOMA
     Dosage: 15 MG/M2, UNK, 2 (5DAYS)
     Route: 065
  5. VINCRISTINE SULFATE. [Suspect]
     Active Substance: VINCRISTINE SULFATE
     Indication: NEPHROBLASTOMA
     Dosage: UNK
     Route: 065

REACTIONS (2)
  - Nephroblastoma [Fatal]
  - Disease progression [Fatal]
